FAERS Safety Report 9490419 (Version 1)
Quarter: 2013Q3

REPORT INFORMATION
  Report Type: Spontaneous
  Country: US (occurrence: None)
  Receive Date: 20130827
  Receipt Date: 20130827
  Transmission Date: 20140515
  Serious: No
  Sender: FDA-Public Use
  Company Number: None

PATIENT
  Age: 78 None
  Sex: Male

DRUGS (21)
  1. XARELTO [Suspect]
     Indication: THROMBOSIS PROPHYLAXIS
     Route: 048
     Dates: start: 20130724, end: 20130724
  2. TIKOSYN [Concomitant]
  3. ISOSRBIDE DIM [Concomitant]
  4. DIOVAN [Concomitant]
  5. FUROSEMIDE [Concomitant]
  6. CRESTOR [Concomitant]
  7. LEVOTHYROXINE SODIUM [Concomitant]
  8. WARFARIN [Concomitant]
  9. COSOPT EYE DROPS [Concomitant]
  10. XALATAN EYE DROPS [Concomitant]
  11. ASPIRIN [Concomitant]
  12. PRILOSEC [Concomitant]
  13. METAMUCIL [Concomitant]
  14. FISH OIL-OMEGA 3 [Concomitant]
  15. MIRA LAX [Concomitant]
  16. VITAMIN E [Concomitant]
  17. VITAMIN D [Concomitant]
  18. VITAMIN C [Concomitant]
  19. CALCIUM [Concomitant]
  20. MULTI VITAMIN [Concomitant]
  21. NIACIN [Concomitant]

REACTIONS (8)
  - Chills [None]
  - Abdominal pain upper [None]
  - Headache [None]
  - Vomiting [None]
  - Asthenia [None]
  - Pollakiuria [None]
  - Oral pain [None]
  - Fatigue [None]
